FAERS Safety Report 4379289-3 (Version None)
Quarter: 2004Q2

REPORT INFORMATION
  Report Type: 
  Country: None (occurrence: None)
  Receive Date: 20040614
  Receipt Date: 20040528
  Transmission Date: 20050107
  Serious: Yes (Hospitalization)
  Sender: FDA-Public Use
  Company Number: 2004-BP-04214RO

PATIENT
  Age: 57 Year
  Sex: Male
  Weight: 123 kg

DRUGS (2)
  1. PREDNISONE TAB [Suspect]
  2. ERL080A (ERL 080A ERL + TAB) TABLET [Suspect]
     Indication: RENAL TRANSPLANT
     Dosage: PO
     Route: 048
     Dates: start: 20001220

REACTIONS (9)
  - ASTHENIA [None]
  - DIABETES MELLITUS INADEQUATE CONTROL [None]
  - DIARRHOEA [None]
  - DRY MOUTH [None]
  - HYPERGLYCAEMIA [None]
  - KIDNEY TRANSPLANT REJECTION [None]
  - POLYURIA [None]
  - TREATMENT NONCOMPLIANCE [None]
  - VISION BLURRED [None]
